FAERS Safety Report 15880896 (Version 1)
Quarter: 2019Q1

REPORT INFORMATION
  Report Type: Spontaneous
  Country: DE (occurrence: DE)
  Receive Date: 20190128
  Receipt Date: 20190128
  Transmission Date: 20190417
  Serious: Yes (Hospitalization)
  Sender: FDA-Public Use
  Company Number: DE-ELI_LILLY_AND_COMPANY-DE201901011816

PATIENT
  Age: 57 Year
  Sex: Female
  Weight: 53 kg

DRUGS (1)
  1. ERBITUX [Suspect]
     Active Substance: CETUXIMAB
     Indication: OROPHARYNGEAL SQUAMOUS CELL CARCINOMA
     Dosage: 250 MG/M2, WEEKLY (1/W)
     Route: 042
     Dates: start: 20180622, end: 20181116

REACTIONS (2)
  - Mucosal inflammation [Unknown]
  - Thyroiditis [Unknown]

NARRATIVE: CASE EVENT DATE: 20181116
